FAERS Safety Report 6128470-1 (Version None)
Quarter: 2009Q1

REPORT INFORMATION
  Report Type: 
  Country: None (occurrence: None)
  Receive Date: 20090323
  Receipt Date: 20090312
  Transmission Date: 20090719
  Serious: Yes (Other)
  Sender: FDA-Public Use
  Company Number: ZA-ASTRAZENECA-2009SE01117

PATIENT
  Age: 52 Year
  Sex: Male

DRUGS (7)
  1. CRESTOR [Suspect]
     Indication: BLOOD CHOLESTEROL INCREASED
     Route: 048
  2. DIOVAN [Concomitant]
     Dates: end: 20080601
  3. DIOVAN [Concomitant]
     Dates: start: 20080601
  4. ADALAT CC [Concomitant]
  5. NEBILET [Concomitant]
  6. GLUCOPHAGE [Concomitant]
  7. ALLOPURINOL [Concomitant]

REACTIONS (1)
  - RENAL FAILURE [None]
